APPROVED DRUG PRODUCT: FESOTERODINE FUMARATE
Active Ingredient: FESOTERODINE FUMARATE
Strength: 4MG
Dosage Form/Route: TABLET, EXTENDED RELEASE;ORAL
Application: A205007 | Product #001 | TE Code: AB
Applicant: AUROBINDO PHARMA LTD
Approved: Feb 17, 2017 | RLD: No | RS: No | Type: RX